FAERS Safety Report 17021117 (Version 6)
Quarter: 2020Q4

REPORT INFORMATION
  Report Type: Report from Study
  Country: US (occurrence: US)
  Receive Date: 20191112
  Receipt Date: 20201029
  Transmission Date: 20210113
  Serious: Yes (Other)
  Sender: FDA-Public Use
  Company Number: NVSC2019US025620

PATIENT
  Age: 38 Year
  Sex: Female

DRUGS (4)
  1. NAPROXEN. [Concomitant]
     Active Substance: NAPROXEN
     Indication: PRODUCT USED FOR UNKNOWN INDICATION
     Route: 065
  2. GILENYA [Suspect]
     Active Substance: FINGOLIMOD HYDROCHLORIDE
     Dosage: 0.5 MG, QD
     Route: 048
     Dates: start: 201910
  3. GILENYA [Suspect]
     Active Substance: FINGOLIMOD HYDROCHLORIDE
     Indication: MULTIPLE SCLEROSIS
     Dosage: 0.5 MG, QD
     Route: 048
     Dates: start: 20190626
  4. GILENYA [Suspect]
     Active Substance: FINGOLIMOD HYDROCHLORIDE
     Dosage: 0.5 MG, QD
     Route: 048
     Dates: start: 20191023

REACTIONS (18)
  - Anhedonia [Unknown]
  - Cognitive disorder [Unknown]
  - Heart rate decreased [Unknown]
  - Back pain [Unknown]
  - Feeling abnormal [Unknown]
  - Headache [Unknown]
  - Poor quality sleep [Unknown]
  - Depressed mood [Unknown]
  - Pain in extremity [Unknown]
  - Diplopia [Unknown]
  - Arthralgia [Unknown]
  - Dizziness [Unknown]
  - Fatigue [Unknown]
  - Decreased interest [Unknown]
  - Sinusitis [Unknown]
  - Bipolar disorder [Unknown]
  - Depression [Unknown]
  - Nausea [Unknown]

NARRATIVE: CASE EVENT DATE: 20191023
